FAERS Safety Report 5668618-6 (Version None)
Quarter: 2008Q1

REPORT INFORMATION
  Report Type: 
  Country: None (occurrence: None)
  Receive Date: 20080315
  Receipt Date: 20080229
  Transmission Date: 20080703
  Serious: No
  Sender: FDA-Public Use
  Company Number: US-ABBOTT-08P-163-0440646-00

PATIENT
  Sex: Female
  Weight: 51.302 kg

DRUGS (4)
  1. HUMIRA [Suspect]
     Indication: CROHN'S DISEASE
     Route: 058
     Dates: start: 20080101
  2. MESALAMINE [Concomitant]
     Indication: CROHN'S DISEASE
     Route: 048
     Dates: start: 19980101
  3. HYDROXYCHLOROQUINE PHOSPHATE [Concomitant]
     Indication: CROHN'S DISEASE
     Route: 048
     Dates: start: 19990101
  4. MINOCYCLINE HCL [Concomitant]
     Indication: ACNE
     Route: 048
     Dates: start: 20060101

REACTIONS (1)
  - NASOPHARYNGITIS [None]
